FAERS Safety Report 14414495 (Version 1)
Quarter: 2018Q1

REPORT INFORMATION
  Report Type: Spontaneous
  Country: US (occurrence: US)
  Receive Date: 20180120
  Receipt Date: 20180120
  Transmission Date: 20180509
  Serious: No
  Sender: FDA-Public Use
  Company Number: PHEH2018US002578

PATIENT
  Age: 34 Year
  Sex: Male

DRUGS (2)
  1. PROMACTA [Suspect]
     Active Substance: ELTROMBOPAG OLAMINE
     Indication: BONE MARROW TRANSPLANT
     Dosage: 25 MG, QD
     Route: 048
     Dates: start: 20170802
  2. PROMACTA [Suspect]
     Active Substance: ELTROMBOPAG OLAMINE
     Indication: ACUTE MYELOID LEUKAEMIA

REACTIONS (4)
  - Diarrhoea [Unknown]
  - Rash [Unknown]
  - Pain in extremity [Unknown]
  - Flatulence [Unknown]

NARRATIVE: CASE EVENT DATE: 20180111
